FAERS Safety Report 9127254 (Version 2)
Quarter: 2013Q2

REPORT INFORMATION
  Report Type: Spontaneous
  Country: GB (occurrence: GB)
  Receive Date: 20130122
  Receipt Date: 20130621
  Transmission Date: 20140414
  Serious: Yes (Other)
  Sender: FDA-Public Use
  Company Number: GB-BAUSCH-BL-2013-000140

PATIENT
  Age: 16 Year
  Sex: Female
  Weight: 53.6 kg

DRUGS (19)
  1. DEXAMETHASONE/DEXAMETHASONE SODIUM PHOSPHATE [Suspect]
     Indication: PROPHYLAXIS OF NAUSEA AND VOMITING
     Dosage: 1 DAYS
     Route: 041
     Dates: start: 20120417, end: 20120417
  2. DEXAMETHASONE/DEXAMETHASONE SODIUM PHOSPHATE [Suspect]
     Dosage: 1 DAYS
     Route: 041
     Dates: start: 20120418, end: 20120420
  3. APREPITANT [Suspect]
     Indication: PROPHYLAXIS OF NAUSEA AND VOMITING
     Dosage: 1 TOTAL
     Route: 048
     Dates: start: 20120417, end: 20120417
  4. APREPITANT [Suspect]
     Dosage: 1 TOTAL
     Route: 048
     Dates: start: 20120418, end: 20120419
  5. CISPLATIN [Suspect]
     Indication: OSTEOSARCOMA
     Dates: start: 20120417, end: 20120420
  6. DOXORUBICIN [Suspect]
     Indication: OSTEOSARCOMA
     Dosage: 1 /1DAYS
     Dates: start: 20120417, end: 20120419
  7. ONDANSETRON [Suspect]
     Indication: PROPHYLAXIS OF NAUSEA AND VOMITING
     Dosage: 1/ 1/DAYS
     Route: 048
     Dates: start: 20120417, end: 20120417
  8. ONDANSETRON [Suspect]
     Dosage: 2/ 1DAYS
     Route: 048
     Dates: start: 20120418, end: 20120420
  9. NO DRUG NAME [Concomitant]
     Indication: PAIN
     Dosage: 1/1DAYS
     Dates: start: 20120413, end: 20120418
  10. NO DRUG NAME [Concomitant]
     Indication: SEDATION
     Dosage: 1 TOTAL
     Dates: start: 20120424
  11. NO DRUG NAME [Concomitant]
     Indication: PAIN MANAGEMENT
     Dosage: 2/1 AS NECESSARY
     Dates: start: 20120414, end: 20120415
  12. NO DRUG NAME [Concomitant]
     Indication: CONSTIPATION
     Dosage: 1DAYS
     Dates: start: 20120418
  13. NO DRUG NAME [Concomitant]
     Dosage: 2/ 1DAYS
     Dates: start: 20120419
  14. NO DRUG NAME [Concomitant]
     Dosage: 1DAYS
     Dates: start: 20120420
  15. NO DRUG NAME [Concomitant]
     Indication: VOMITING
     Dosage: 2/1DAYS
     Dates: start: 20120419, end: 20120419
  16. NO DRUG NAME [Concomitant]
     Indication: NAUSEA
     Dosage: 4/1DAYS
     Dates: start: 20120419, end: 20120419
  17. NO DRUG NAME [Concomitant]
     Indication: VOMITING
     Dosage: 4/1DAYS
  18. NO DRUG NAME [Concomitant]
     Indication: NAUSEA
     Dosage: 2/1DAYS
     Dates: start: 20120414, end: 20120414
  19. NO DRUG NAME [Concomitant]
     Indication: ANALGESIC THERAPY
     Route: 061
     Dates: start: 20120413, end: 20120413

REACTIONS (3)
  - Sinus arrhythmia [Recovered/Resolved]
  - Dyskinesia [Recovered/Resolved]
  - Electrocardiogram T wave inversion [Recovered/Resolved]
